FAERS Safety Report 9375941 (Version 1)
Quarter: 2013Q2

REPORT INFORMATION
  Report Type: Spontaneous
  Country: CA (occurrence: CA)
  Receive Date: 20130628
  Receipt Date: 20130628
  Transmission Date: 20140414
  Serious: Yes (Other)
  Sender: FDA-Public Use
  Company Number: CA-RB-055443-13

PATIENT
  Age: 0 Year
  Sex: Male

DRUGS (6)
  1. SUBOXONE TABLET [Suspect]
     Indication: PRODUCT USED FOR UNKNOWN INDICATION
     Route: 064
     Dates: start: 2012, end: 20120912
  2. SUBUTEX [Suspect]
     Indication: PRODUCT USED FOR UNKNOWN INDICATION
     Route: 064
     Dates: start: 20120913, end: 20130415
  3. SUBUTEX [Suspect]
     Route: 063
     Dates: start: 2013
  4. CIPRALEX [Suspect]
     Indication: PRODUCT USED FOR UNKNOWN INDICATION
     Route: 064
     Dates: start: 2012, end: 20130117
  5. STEROIDS [Suspect]
     Indication: PREMATURE LABOUR
     Dosage: 2 DOSES
     Route: 064
     Dates: start: 20130223, end: 20130223
  6. NICOTINE [Suspect]
     Indication: PRODUCT USED FOR UNKNOWN INDICATION
     Dosage: {10 DAILY
     Route: 064
     Dates: start: 2012, end: 2012

REACTIONS (4)
  - Foetal exposure during pregnancy [Recovered/Resolved]
  - Drug withdrawal syndrome neonatal [Recovered/Resolved]
  - Hyperthermia [Unknown]
  - Exposure during breast feeding [Unknown]
